FAERS Safety Report 5451530-5 (Version None)
Quarter: 2007Q3

REPORT INFORMATION
  Report Type: 
  Country: None (occurrence: None)
  Receive Date: 20070913
  Receipt Date: 20070910
  Transmission Date: 20080115
  Serious: Yes (Hospitalization)
  Sender: FDA-Public Use
  Company Number: JP-GILEAD-2007-0012496

PATIENT
  Sex: Male

DRUGS (5)
  1. TRUVADA [Suspect]
     Indication: HIV INFECTION
     Route: 048
     Dates: start: 20060208
  2. STOCRIN [Suspect]
     Indication: HIV INFECTION
     Route: 048
     Dates: start: 20060208
  3. BENAMBAX [Concomitant]
     Dates: start: 20060123
  4. BENAMBAX [Concomitant]
     Dates: start: 20060213
  5. BENAMBAX [Concomitant]
     Dates: start: 20060314

REACTIONS (2)
  - ERYTHEMA [None]
  - PRURITUS [None]
